FAERS Safety Report 8392184-8 (Version None)
Quarter: 2012Q2

REPORT INFORMATION
  Report Type: 
  Country: None (occurrence: None)
  Receive Date: 20120529
  Receipt Date: 20120516
  Transmission Date: 20120825
  Serious: Yes (Death, Other)
  Sender: FDA-Public Use
  Company Number: JP-ROCHE-1046696

PATIENT
  Sex: Male
  Weight: 50 kg

DRUGS (12)
  1. AMLODIPINE BESYLATE [Concomitant]
     Indication: ESSENTIAL HYPERTENSION
     Route: 048
     Dates: start: 20111012
  2. VOLTAREN [Concomitant]
     Indication: CANCER PAIN
     Route: 054
     Dates: start: 20120112
  3. AVASTIN [Suspect]
     Route: 041
     Dates: start: 20120111, end: 20120222
  4. ISOVORIN [Concomitant]
     Route: 041
     Dates: start: 20120111, end: 20120222
  5. OXALIPLATIN [Concomitant]
     Indication: COLON CANCER METASTATIC
     Route: 041
     Dates: start: 20120111, end: 20120222
  6. FLUOROURACIL [Concomitant]
     Indication: COLON CANCER METASTATIC
     Route: 041
     Dates: start: 20111017, end: 20111201
  7. AVASTIN [Suspect]
     Indication: COLON CANCER METASTATIC
     Route: 041
     Dates: start: 20111017, end: 20111228
  8. LANSOPRAZOLE [Concomitant]
     Indication: PROPHYLAXIS AGAINST GASTROINTESTINAL ULCER
     Route: 048
     Dates: start: 20120112
  9. FLUOROURACIL [Concomitant]
     Route: 041
     Dates: start: 20120111, end: 20120201
  10. ISOVORIN [Concomitant]
     Indication: COLON CANCER METASTATIC
     Route: 041
     Dates: start: 20111017, end: 20111228
  11. TOPOTECAN [Concomitant]
     Indication: COLON CANCER METASTATIC
     Route: 041
     Dates: start: 20111017, end: 20111228
  12. MUCOSTA [Concomitant]
     Indication: PROPHYLAXIS AGAINST GASTROINTESTINAL ULCER
     Route: 048
     Dates: start: 20111130

REACTIONS (5)
  - INFECTIOUS PERITONITIS [None]
  - METASTASES TO PERITONEUM [None]
  - ILEAL PERFORATION [None]
  - CACHEXIA [None]
  - GASTROINTESTINAL PERFORATION [None]
